FAERS Safety Report 17062583 (Version 1)
Quarter: 2019Q4

REPORT INFORMATION
  Report Type: Spontaneous
  Country: US (occurrence: US)
  Receive Date: 20191122
  Receipt Date: 20191122
  Transmission Date: 20200122
  Serious: Yes (Death, Hospitalization, Other)
  Sender: FDA-Public Use
  Company Number: US-APOTEX-2019AP025021

PATIENT
  Age: 32 Year
  Sex: Female

DRUGS (1)
  1. ACETAMINOPHEN. [Suspect]
     Active Substance: ACETAMINOPHEN
     Indication: PRODUCT USED FOR UNKNOWN INDICATION
     Dosage: UNK
     Route: 065

REACTIONS (12)
  - Anion gap [Fatal]
  - Depressed level of consciousness [Fatal]
  - Bradypnoea [Fatal]
  - Hypotension [Fatal]
  - Toxicity to various agents [Fatal]
  - Coagulopathy [Fatal]
  - Ventricular arrhythmia [Fatal]
  - Hepatotoxicity [Fatal]
  - Coma [Fatal]
  - Hypertension [Fatal]
  - Agitation [Fatal]
  - Metabolic acidosis [Fatal]
